FAERS Safety Report 16988870 (Version 2)
Quarter: 2020Q2

REPORT INFORMATION
  Report Type: Report from Study
  Country: US (occurrence: US)
  Receive Date: 20191104
  Receipt Date: 20200522
  Transmission Date: 20200713
  Serious: Yes (Other)
  Sender: FDA-Public Use
  Company Number: PHHY2019US121327

PATIENT
  Age: 35 Year
  Sex: Female

DRUGS (4)
  1. IRON [Concomitant]
     Active Substance: IRON
     Indication: GENERAL PHYSICAL CONDITION
     Dosage: UNK
     Route: 065
     Dates: start: 20190326, end: 20200123
  2. ELAVIL [Concomitant]
     Active Substance: AMITRIPTYLINE HYDROCHLORIDE
     Indication: INSOMNIA
     Dosage: UNK
     Route: 065
     Dates: start: 20190326
  3. AMANTADINE. [Concomitant]
     Active Substance: AMANTADINE HYDROCHLORIDE
     Indication: MULTIPLE SCLEROSIS
     Dosage: UNK
     Route: 065
     Dates: start: 20190613
  4. GILENYA [Suspect]
     Active Substance: FINGOLIMOD HYDROCHLORIDE
     Indication: MULTIPLE SCLEROSIS
     Dosage: UNK, QD
     Route: 048

REACTIONS (22)
  - Fatigue [Unknown]
  - Blood calcium decreased [Unknown]
  - Arthralgia [Not Recovered/Not Resolved]
  - Urinary retention [Unknown]
  - Dizziness [Unknown]
  - Ear pain [Unknown]
  - Lymphocyte count decreased [Unknown]
  - Feeling hot [Unknown]
  - Back pain [Unknown]
  - Constipation [Unknown]
  - Muscle spasms [Unknown]
  - Temperature intolerance [Not Recovered/Not Resolved]
  - Pruritus [Not Recovered/Not Resolved]
  - Seborrhoeic keratosis [Unknown]
  - Bladder pain [Unknown]
  - Fibrous histiocytoma [Not Recovered/Not Resolved]
  - Milia [Not Recovered/Not Resolved]
  - Pain in extremity [Not Recovered/Not Resolved]
  - Urinary incontinence [Not Recovered/Not Resolved]
  - Hyperhidrosis [Unknown]
  - Hypoacusis [Unknown]
  - Vibratory sense increased [Not Recovered/Not Resolved]

NARRATIVE: CASE EVENT DATE: 20181204
